FAERS Safety Report 13312321 (Version 1)
Quarter: 2017Q1

REPORT INFORMATION
  Report Type: Spontaneous
  Country: US (occurrence: US)
  Receive Date: 20170309
  Receipt Date: 20170309
  Transmission Date: 20170428
  Serious: Yes (Life-Threatening, Other)
  Sender: FDA-Public Use
  Company Number: None

PATIENT
  Age: 60 Year
  Sex: Male
  Weight: 62.3 kg

DRUGS (1)
  1. CEFEPIME [Suspect]
     Active Substance: CEFEPIME HYDROCHLORIDE
     Route: 042
     Dates: start: 20170124, end: 20170218

REACTIONS (5)
  - Dialysis [None]
  - Hypovolaemia [None]
  - Acute kidney injury [None]
  - Renal tubular necrosis [None]
  - Azotaemia [None]

NARRATIVE: CASE EVENT DATE: 20170218
